FAERS Safety Report 7489380-0 (Version None)
Quarter: 2011Q2

REPORT INFORMATION
  Report Type: 
  Country: None (occurrence: None)
  Receive Date: 20110518
  Receipt Date: 20110513
  Transmission Date: 20111010
  Serious: Yes (Other)
  Sender: FDA-Public Use
  Company Number: US-ABBOTT-11P-163-0725876-00

PATIENT
  Sex: Female
  Weight: 90.8 kg

DRUGS (8)
  1. PLAQUENIL [Concomitant]
     Indication: RHEUMATOID ARTHRITIS
  2. PREDNISONE [Concomitant]
     Indication: RHEUMATOID ARTHRITIS
  3. CYMBALTA [Concomitant]
     Indication: RHEUMATOID ARTHRITIS
  4. FOLIC ACID [Concomitant]
     Indication: RHEUMATOID ARTHRITIS
  5. HUMIRA [Suspect]
     Indication: RHEUMATOID ARTHRITIS
     Route: 058
     Dates: start: 20080101
  6. ALBUTEROL [Concomitant]
     Indication: ASTHMA
  7. IMURAN [Concomitant]
     Indication: RHEUMATOID ARTHRITIS
  8. SINGULAIR [Concomitant]
     Indication: ASTHMA

REACTIONS (7)
  - IMPAIRED HEALING [None]
  - FRACTURE NONUNION [None]
  - PAIN IN EXTREMITY [None]
  - LOCAL SWELLING [None]
  - JOINT RANGE OF MOTION DECREASED [None]
  - ARTHRITIS [None]
  - FALL [None]
